FAERS Safety Report 8009223-6 (Version None)
Quarter: 2011Q4

REPORT INFORMATION
  Report Type: 
  Country: None (occurrence: None)
  Receive Date: 20111227
  Receipt Date: 20111221
  Transmission Date: 20120403
  Serious: Yes (Death)
  Sender: FDA-Public Use
  Company Number: FI-ASTRAZENECA-2011SE66162

PATIENT
  Age: 19698 Day
  Sex: Female

DRUGS (8)
  1. EFFEXOR [Suspect]
     Indication: DEPRESSION
     Route: 065
     Dates: start: 20111017
  2. TENOX [Concomitant]
  3. SEROQUEL [Suspect]
     Dosage: 200 MG PLUS 25 MG +-4TBL/DAY
     Route: 048
  4. LORAZEPAM [Concomitant]
  5. SEROQUEL [Suspect]
     Indication: DEPRESSION
     Route: 048
     Dates: start: 20060101
  6. THYROXIN [Concomitant]
  7. MIRTATSEPAN [Concomitant]
  8. SEROQUEL [Suspect]
     Route: 048
     Dates: start: 20110601

REACTIONS (1)
  - COMPLETED SUICIDE [None]
